FAERS Safety Report 12825810 (Version 2)
Quarter: 2017Q1

REPORT INFORMATION
  Report Type: Report from Study
  Country: IT (occurrence: IT)
  Receive Date: 20161007
  Receipt Date: 20170208
  Transmission Date: 20170428
  Serious: Yes (Hospitalization)
  Sender: FDA-Public Use
  Company Number: IT-TEVA-699170ACC

PATIENT
  Age: 82 Year
  Sex: Female

DRUGS (3)
  1. ROCEFIN - 1 G/3,5 ML POLVERE E SOLVENTE PER SOLUZIONE INIETTABILE - RO [Concomitant]
     Indication: PYREXIA
     Route: 030
     Dates: start: 20160611, end: 20160613
  2. RISPERIDONE. [Suspect]
     Active Substance: RISPERIDONE
     Indication: PRODUCT USED FOR UNKNOWN INDICATION
     Route: 048
     Dates: start: 20160613, end: 20160613
  3. TALOFEN [Suspect]
     Active Substance: PROMAZINE HYDROCHLORIDE
     Indication: PRODUCT USED FOR UNKNOWN INDICATION
     Route: 048
     Dates: start: 20160613, end: 20160613

REACTIONS (1)
  - Sopor [Recovering/Resolving]

NARRATIVE: CASE EVENT DATE: 20160614
